FAERS Safety Report 16040031 (Version 1)
Quarter: 2019Q1

REPORT INFORMATION
  Report Type: Spontaneous
  Country: US (occurrence: US)
  Receive Date: 20190306
  Receipt Date: 20190306
  Transmission Date: 20190418
  Serious: No
  Sender: FDA-Public Use
  Company Number: US-ASTRAZENECA-2019SE22209

PATIENT
  Sex: Female
  Weight: 58.1 kg

DRUGS (2)
  1. SYMBICORT [Suspect]
     Active Substance: BUDESONIDE\FORMOTEROL FUMARATE DIHYDRATE
     Indication: CHRONIC OBSTRUCTIVE PULMONARY DISEASE
     Dosage: 160/4.5 MCG, 2 PUFFS TWICE DAILY
     Route: 055
  2. BEVESPI AEROSPHERE [Suspect]
     Active Substance: FORMOTEROL FUMARATE\GLYCOPYRROLATE
     Indication: CHRONIC OBSTRUCTIVE PULMONARY DISEASE
     Dosage: 9 MCG/4.8 MCG, 2 PUFFS TWICE DAILY
     Route: 055
     Dates: start: 20190206

REACTIONS (8)
  - Oesophageal candidiasis [Not Recovered/Not Resolved]
  - Oropharyngeal pain [Unknown]
  - Drug effect incomplete [Unknown]
  - Dysphagia [Unknown]
  - Fungal infection [Recovered/Resolved]
  - Inflammation [Unknown]
  - Stomatitis [Unknown]
  - Weight decreased [Unknown]
